FAERS Safety Report 6250433-6 (Version None)
Quarter: 2009Q2

REPORT INFORMATION
  Report Type: 
  Country: None (occurrence: None)
  Receive Date: 20090630
  Receipt Date: 20090625
  Transmission Date: 20091009
  Serious: Yes (Hospitalization)
  Sender: FDA-Public Use
  Company Number: PHHO2009FR04886

PATIENT
  Sex: Female
  Weight: 85 kg

DRUGS (3)
  1. RAD 666 RAD+TAB+CMAS [Suspect]
     Indication: BREAST CANCER
     Dosage: 10 MG/DAY
     Route: 048
     Dates: start: 20090327
  2. TRASTUZUMAB [Suspect]
     Indication: BREAST CANCER
     Dosage: 340 MG/DAY
     Route: 042
     Dates: start: 20090327
  3. PACLITAXEL [Concomitant]
     Indication: BREAST CANCER
     Dosage: 150 MG/DAY
     Route: 042
     Dates: start: 20090327

REACTIONS (2)
  - HYPOKALAEMIA [None]
  - HYPOMAGNESAEMIA [None]
